FAERS Safety Report 8387076-4 (Version None)
Quarter: 2012Q2

REPORT INFORMATION
  Report Type: 
  Country: None (occurrence: None)
  Receive Date: 20120525
  Receipt Date: 20120517
  Transmission Date: 20120825
  Serious: Yes (Hospitalization, Other)
  Sender: FDA-Public Use
  Company Number: US-ACTELION-A-US2012-66017

PATIENT

DRUGS (2)
  1. IODINE [Suspect]
  2. TRACLEER [Suspect]
     Indication: PULMONARY ARTERIAL HYPERTENSION
     Dosage: UNK
     Route: 048
     Dates: start: 20070430

REACTIONS (3)
  - HYPERSENSITIVITY [None]
  - HYSTERECTOMY [None]
  - ENDOMETRIAL CANCER [None]
